FAERS Safety Report 10531679 (Version 3)
Quarter: 2014Q4

REPORT INFORMATION
  Report Type: Report from Study
  Country: CA (occurrence: CA)
  Receive Date: 20141021
  Receipt Date: 20141113
  Transmission Date: 20150529
  Serious: Yes (Death, Life-Threatening)
  Sender: FDA-Public Use
  Company Number: PHHY2014CA135730

PATIENT
  Age: 62 Year
  Sex: Male

DRUGS (1)
  1. CLOZARIL [Suspect]
     Active Substance: CLOZAPINE
     Indication: PRODUCT USED FOR UNKNOWN INDICATION
     Dosage: UNK
     Route: 048
     Dates: start: 20031121

REACTIONS (4)
  - White blood cell count increased [Unknown]
  - Pneumonia [Fatal]
  - Neutrophil count increased [Unknown]
  - Terminal state [Unknown]

NARRATIVE: CASE EVENT DATE: 20141015
